FAERS Safety Report 4353237-4 (Version None)
Quarter: 2004Q2

REPORT INFORMATION
  Report Type: 
  Country: None (occurrence: None)
  Receive Date: 20040429
  Receipt Date: 20040122
  Transmission Date: 20050107
  Serious: Yes (Death)
  Sender: FDA-Public Use
  Company Number: REL-RIR-113

PATIENT
  Age: 43 Year
  Sex: Male

DRUGS (4)
  1. RYTHMOL [Suspect]
     Indication: POISONING DELIBERATE
  2. CLOMIPRAMINE [Suspect]
  3. DESMETHYLCLOMIPRAMINE [Suspect]
  4. ETHANOL [Concomitant]

REACTIONS (2)
  - OVERDOSE [None]
  - POISONING DELIBERATE [None]
